FAERS Safety Report 17726156 (Version 2)
Quarter: 2020Q2

REPORT INFORMATION
  Report Type: Spontaneous
  Country: TW (occurrence: TW)
  Receive Date: 20200429
  Receipt Date: 20200525
  Transmission Date: 20200714
  Serious: Yes (Other)
  Sender: FDA-Public Use
  Company Number: TW-NOVOPROD-725578

PATIENT
  Age: 27 Year
  Sex: Male

DRUGS (6)
  1. NOVORAPID [Suspect]
     Active Substance: INSULIN ASPART
     Dosage: 45U (10 + (BS-100) / 40, ONLY FOR LUNCH AND DINNER)
     Route: 065
     Dates: start: 2015
  2. LANTUS [Suspect]
     Active Substance: INSULIN GLARGINE
     Indication: TYPE 1 DIABETES MELLITUS
     Dosage: MORNING: 30
     Route: 065
  3. LANTUS [Suspect]
     Active Substance: INSULIN GLARGINE
     Dosage: 22-25U QD
     Route: 065
     Dates: start: 2015
  4. NOVORAPID [Suspect]
     Active Substance: INSULIN ASPART
     Indication: TYPE 1 DIABETES MELLITUS
     Dosage: MORNING : 15+ (BS-100) / 40 DINNER DINNER: 8 + (BS-100) / 40
     Route: 065
  5. NOVORAPID [Suspect]
     Active Substance: INSULIN ASPART
     Dosage: NOVORAPID 10U
     Route: 065
     Dates: start: 2015
  6. LANTUS [Suspect]
     Active Substance: INSULIN GLARGINE
     Dosage: 5 IU, QD
     Route: 065

REACTIONS (2)
  - Amyloidosis [Unknown]
  - Diabetes mellitus inadequate control [Unknown]
